FAERS Safety Report 4823693-3 (Version None)
Quarter: 2005Q4

REPORT INFORMATION
  Report Type: 
  Country: None (occurrence: None)
  Receive Date: 20051107
  Receipt Date: 20051028
  Transmission Date: 20060501
  Serious: Yes (Other)
  Sender: FDA-Public Use
  Company Number: 2005148991

PATIENT
  Sex: Male
  Weight: 72.5755 kg

DRUGS (7)
  1. LIPITOR [Suspect]
     Indication: BLOOD CHOLESTEROL INCREASED
     Dosage: 40 MG (40 MG, 1 IN 1 D), ORAL
     Route: 048
     Dates: start: 20010101
  2. PLAVIX [Concomitant]
  3. TOPROL (METOPROLOL) [Concomitant]
  4. ATACAND [Concomitant]
  5. CARTIA XT [Concomitant]
  6. HALFPRIN (ACETYLSALICYLIC ACID) [Concomitant]
  7. INSULIN [Concomitant]

REACTIONS (3)
  - CARDIAC DISORDER [None]
  - JOINT SWELLING [None]
  - LOW DENSITY LIPOPROTEIN INCREASED [None]
